FAERS Safety Report 14572872 (Version 1)
Quarter: 2018Q1

REPORT INFORMATION
  Report Type: Spontaneous
  Country: US (occurrence: US)
  Receive Date: 20180222
  Receipt Date: 20180222
  Transmission Date: 20180509
  Serious: Yes (Death)
  Sender: FDA-Public Use
  Company Number: None

PATIENT
  Age: 67 Year
  Sex: Male
  Weight: 120 kg

DRUGS (2)
  1. PROTAMINE [Suspect]
     Active Substance: PROTAMINE
     Indication: AORTIC VALVE REPLACEMENT
     Dosage: ?          OTHER FREQUENCY:ONCE;?
     Route: 040
     Dates: start: 20180202, end: 20180202
  2. MULTIPLE [Concomitant]
     Dates: start: 20180202, end: 20180202

REACTIONS (2)
  - Hypersensitivity [None]
  - Circulatory collapse [None]

NARRATIVE: CASE EVENT DATE: 20180202
